FAERS Safety Report 4923515-6 (Version None)
Quarter: 2006Q1

REPORT INFORMATION
  Report Type: 
  Country: None (occurrence: None)
  Receive Date: 20060221
  Receipt Date: 20060208
  Transmission Date: 20060701
  Serious: Yes (Death)
  Sender: FDA-Public Use
  Company Number: 221942

PATIENT
  Age: 58 Year
  Sex: Male
  Weight: 68.9 kg

DRUGS (18)
  1. BEVACIZUMAB OR PLACEBO (BEVACIZUMAB) [Suspect]
     Indication: NON-SMALL CELL LUNG CANCER
     Dosage: 1110 MG, Q3W, INTRAVENOUS
     Route: 042
     Dates: start: 20051007
  2. DOCETAXEL (DOCETAXEL) [Suspect]
     Indication: NON-SMALL CELL LUNG CANCER
     Dosage: 140 MG, Q3W, INTRAVENOUS
     Route: 042
     Dates: start: 20051007
  3. ERLOTINIB  (NO DRUG ADMINISTERED) [Suspect]
     Indication: NON-SMALL CELL LUNG CANCER
  4. GLYBURIDE [Concomitant]
  5. XANAX [Concomitant]
  6. ELAVIL [Concomitant]
  7. CYMBALTA [Concomitant]
  8. VICODIN [Concomitant]
  9. MORPHINE [Concomitant]
  10. SENOKOT [Concomitant]
  11. DECADRON [Concomitant]
  12. ANTIBIOTICS NOS (ANTIBIOTICS NOS) [Concomitant]
  13. IMODIUM [Concomitant]
  14. ATIVAN [Concomitant]
  15. ARANESP [Concomitant]
  16. PHENERGAN WITH CODEINE COUGH SYRUP (CODEINE PHOSPHATE, PROMETHAZINE HY [Concomitant]
  17. COMPAZINE [Concomitant]
  18. PRILOSEC [Concomitant]

REACTIONS (8)
  - COUGH [None]
  - DYSPNOEA EXERTIONAL [None]
  - FATIGUE [None]
  - HAEMATOCRIT DECREASED [None]
  - HAEMOGLOBIN DECREASED [None]
  - PNEUMONIA [None]
  - PULMONARY HAEMORRHAGE [None]
  - RED BLOOD CELL COUNT DECREASED [None]
